FAERS Safety Report 6806957-3 (Version None)
Quarter: 2010Q2

REPORT INFORMATION
  Report Type: 
  Country: None (occurrence: None)
  Receive Date: 20100629
  Receipt Date: 20080522
  Transmission Date: 20101027
  Serious: No
  Sender: FDA-Public Use
  Company Number: US-PFIZER INC-2008044289

PATIENT
  Sex: Male
  Weight: 31.75 kg

DRUGS (6)
  1. TIKOSYN [Suspect]
     Indication: ATRIAL FIBRILLATION
     Dates: start: 20070801
  2. ALL OTHER THERAPEUTIC PRODUCTS [Concomitant]
  3. DILTIAZEM [Concomitant]
  4. WARFARIN [Concomitant]
  5. THYROID TAB [Concomitant]
  6. RITALIN [Concomitant]

REACTIONS (2)
  - CARBON DIOXIDE INCREASED [None]
  - COLONOSCOPY [None]
